FAERS Safety Report 22525366 (Version 2)
Quarter: 2023Q2

REPORT INFORMATION
  Report Type: Spontaneous
  Country: MX (occurrence: MX)
  Receive Date: 20230606
  Receipt Date: 20230622
  Transmission Date: 20230721
  Serious: Yes (Other)
  Sender: FDA-Public Use
  Company Number: MX-BAYER-2023A078306

PATIENT
  Age: 67 Year
  Sex: Female

DRUGS (2)
  1. FINERENONE [Suspect]
     Active Substance: FINERENONE
     Indication: Diabetes mellitus
     Dosage: 10 MG
     Dates: start: 20230427, end: 20230529
  2. FINERENONE [Suspect]
     Active Substance: FINERENONE
     Indication: Nephropathy

REACTIONS (3)
  - Blood potassium increased [None]
  - Blood creatinine increased [None]
  - Metabolic disorder [None]
